FAERS Safety Report 8525661-7 (Version None)
Quarter: 2012Q3

REPORT INFORMATION
  Report Type: 
  Country: None (occurrence: None)
  Receive Date: 20120720
  Receipt Date: 20120713
  Transmission Date: 20120928
  Serious: Yes (Hospitalization)
  Sender: FDA-Public Use
  Company Number: CA-ABBOTT-12P-028-0955873-00

PATIENT
  Sex: Female

DRUGS (2)
  1. HUMIRA [Suspect]
     Indication: CROHN'S DISEASE
     Route: 058
     Dates: start: 20110927, end: 20111201
  2. HUMIRA [Suspect]
     Route: 058
     Dates: start: 20111231, end: 20120131

REACTIONS (3)
  - CROHN'S DISEASE [None]
  - POST PROCEDURAL SEPSIS [None]
  - ANAL ABSCESS [None]
